FAERS Safety Report 11808174 (Version 4)
Quarter: 2015Q4

REPORT INFORMATION
  Report Type: Spontaneous
  Country: ES (occurrence: ES)
  Receive Date: 20151207
  Receipt Date: 20151223
  Transmission Date: 20160305
  Serious: Yes (Other)
  Sender: FDA-Public Use
  Company Number: ES-JNJFOC-20151203065

PATIENT
  Age: 71 Year
  Sex: Female
  Weight: 60 kg

DRUGS (6)
  1. REMICADE [Suspect]
     Active Substance: INFLIXIMAB
     Indication: PSORIASIS
     Route: 042
     Dates: start: 201001, end: 201205
  2. REMICADE [Suspect]
     Active Substance: INFLIXIMAB
     Indication: PSORIASIS
     Dosage: WEEK 0,2 AND 6,AND EVERY 8 WEEKS. APPROXIMATE TOTAL NUMBER OF INFUSIONS PATIENT RECEIVED 16.
     Route: 042
     Dates: start: 20100421, end: 20120302
  3. REMICADE [Suspect]
     Active Substance: INFLIXIMAB
     Indication: PSORIASIS
     Route: 042
     Dates: start: 201001, end: 201205
  4. TRAVOPROST [Concomitant]
     Active Substance: TRAVOPROST
     Indication: GLAUCOMA
     Route: 061
     Dates: start: 20120223
  5. REMICADE [Suspect]
     Active Substance: INFLIXIMAB
     Indication: PSORIASIS
     Dosage: WEEK 0,2 AND 6,AND EVERY 8 WEEKS. APPROXIMATE TOTAL NUMBER OF INFUSIONS PATIENT RECEIVED 16.
     Route: 042
     Dates: start: 20100421, end: 20120302
  6. LATANOPROST. [Concomitant]
     Active Substance: LATANOPROST
     Indication: GLAUCOMA
     Route: 061
     Dates: start: 20120223

REACTIONS (1)
  - Bladder cancer [Unknown]

NARRATIVE: CASE EVENT DATE: 20150501
